FAERS Safety Report 23741595 (Version 3)
Quarter: 2024Q2

REPORT INFORMATION
  Report Type: Spontaneous
  Country: AU (occurrence: AU)
  Receive Date: 20240415
  Receipt Date: 20240626
  Transmission Date: 20240716
  Serious: Yes (Other)
  Sender: FDA-Public Use
  Company Number: AU-JNJFOC-20240415310

PATIENT
  Sex: Male

DRUGS (2)
  1. RISPERDAL [Suspect]
     Active Substance: RISPERIDONE
     Indication: Product used for unknown indication
     Dosage: DOSE REDUCED IN FEB-2014
     Route: 048
     Dates: end: 201402
  2. RISPERDAL [Suspect]
     Active Substance: RISPERIDONE
     Dosage: TOOK RISPERIDONE OVER 20 YEARS
     Route: 048
     Dates: end: 2018

REACTIONS (2)
  - Gynaecomastia [Unknown]
  - Sexual dysfunction [Unknown]
